FAERS Safety Report 9441280 (Version 6)
Quarter: 2014Q1

REPORT INFORMATION
  Report Type: Spontaneous
  Country: US (occurrence: US)
  Receive Date: 20130805
  Receipt Date: 20140214
  Transmission Date: 20141002
  Serious: Yes (Other)
  Sender: FDA-Public Use
  Company Number: US-TARO-2013P1013840

PATIENT
  Age: 29 Year
  Sex: Male
  Weight: 97.52 kg

DRUGS (37)
  1. ETODOLAC CAPSULES 300 MG [Suspect]
     Route: 048
     Dates: start: 20121018, end: 201301
  2. ^AMSC^  BACLOFEN [Concomitant]
     Route: 048
     Dates: start: 20121012, end: 20121111
  3. FLONASE [Concomitant]
     Route: 045
  4. CYCLOBENZAPRINE [Concomitant]
     Route: 048
  5. SUCRALFATE [Concomitant]
     Route: 048
     Dates: start: 20121012
  6. NAPROXEN [Concomitant]
     Route: 048
     Dates: start: 20121012
  7. GABAPENTIN [Concomitant]
     Route: 048
     Dates: start: 20121012
  8. GABAPENTIN [Concomitant]
     Route: 048
     Dates: start: 20130402
  9. IBUPROFEN [Concomitant]
     Route: 048
     Dates: start: 20121012
  10. LORAZEPAM [Concomitant]
     Route: 048
     Dates: start: 20121013
  11. LORAZEPAM [Concomitant]
     Route: 030
     Dates: start: 20121014
  12. DIPHENHYDRAMINE [Concomitant]
     Route: 030
     Dates: start: 20121014
  13. MULTIVITAMIN WITH MINERALS [Concomitant]
     Route: 048
     Dates: start: 20121015
  14. MAALOX [Concomitant]
     Route: 048
     Dates: start: 20121015
  15. MILK OF MAGNESIA [Concomitant]
     Route: 048
     Dates: start: 20121015
  16. QUETIAPINE [Concomitant]
     Route: 048
     Dates: start: 20121015
  17. ZIPRASIDONE [Concomitant]
     Route: 030
     Dates: start: 20121015
  18. TRAZODONE [Concomitant]
     Route: 048
     Dates: start: 20121015
  19. FAMOTIDINE [Concomitant]
     Route: 048
     Dates: start: 20121015
  20. FAMOTIDINE [Concomitant]
     Route: 048
     Dates: start: 20130402
  21. CARBAMAZEPINE ER [Concomitant]
     Route: 048
     Dates: start: 20121015
  22. DICYCLOMINE [Concomitant]
     Route: 048
     Dates: start: 20121015
  23. NICOTINE PATCH [Concomitant]
     Route: 062
     Dates: start: 20121015
  24. HALOPERIDOL [Concomitant]
     Route: 048
     Dates: start: 20121016
  25. ARTIFICIAL TEARS [Concomitant]
     Route: 047
     Dates: start: 20121017
  26. THERMACARE BACK WRAP [Concomitant]
     Route: 061
  27. LURASIDONE [Concomitant]
     Route: 048
     Dates: start: 20121017
  28. LURASIDONE [Concomitant]
     Route: 048
     Dates: end: 20130402
  29. METAMUCIL [Concomitant]
     Route: 048
     Dates: start: 20121018
  30. ANUSOL [Concomitant]
     Route: 061
     Dates: start: 20121018
  31. OXYCODONE/ACETAMINOPHEN [Concomitant]
     Route: 048
     Dates: start: 20121021
  32. THIAMINE [Concomitant]
     Dates: start: 20121015
  33. TUBERCULIN PPD [Concomitant]
     Dates: start: 20121015, end: 20121015
  34. MUPIROCIN 2% TOPICAL OINTMENT [Concomitant]
     Route: 061
  35. PARNINE FORTE [Concomitant]
     Route: 048
     Dates: end: 20130402
  36. FIBER CHOICE (INULIN) [Concomitant]
     Route: 048
     Dates: end: 20130402
  37. MOVIPREP [Concomitant]
     Route: 048
     Dates: end: 20130402

REACTIONS (47)
  - Abdominal pain [Not Recovered/Not Resolved]
  - Nephrolithiasis [Not Recovered/Not Resolved]
  - Renal cyst [Not Recovered/Not Resolved]
  - Hepatomegaly [Not Recovered/Not Resolved]
  - Mouth haemorrhage [Recovered/Resolved]
  - Large intestinal haemorrhage [Recovered/Resolved]
  - Haematochezia [Recovered/Resolved]
  - Faeces discoloured [Not Recovered/Not Resolved]
  - Constipation [Not Recovered/Not Resolved]
  - Gastrointestinal pain [Not Recovered/Not Resolved]
  - Haemorrhoids [Not Recovered/Not Resolved]
  - Clostridium difficile infection [Recovered/Resolved]
  - Mastoiditis [Not Recovered/Not Resolved]
  - Sinusitis [Not Recovered/Not Resolved]
  - Nausea [Not Recovered/Not Resolved]
  - Pain [Not Recovered/Not Resolved]
  - Influenza like illness [Not Recovered/Not Resolved]
  - Feeling cold [Not Recovered/Not Resolved]
  - Swelling [Not Recovered/Not Resolved]
  - Feeling hot [Not Recovered/Not Resolved]
  - Vomiting [Not Recovered/Not Resolved]
  - Diarrhoea [Not Recovered/Not Resolved]
  - Agitation [Recovered/Resolved]
  - Pollakiuria [Not Recovered/Not Resolved]
  - Weight decreased [Not Recovered/Not Resolved]
  - Decreased appetite [Not Recovered/Not Resolved]
  - Binge eating [Not Recovered/Not Resolved]
  - Malaise [Not Recovered/Not Resolved]
  - Suicidal ideation [Unknown]
  - Renal pain [Not Recovered/Not Resolved]
  - Neck pain [Unknown]
  - Pain in extremity [Unknown]
  - Major depression [Not Recovered/Not Resolved]
  - Haemoptysis [Unknown]
  - Pancreatic disorder [Unknown]
  - Proctalgia [Unknown]
  - Rectal haemorrhage [Unknown]
  - Stress [Not Recovered/Not Resolved]
  - Myalgia [Not Recovered/Not Resolved]
  - Hepatic pain [Not Recovered/Not Resolved]
  - Mobility decreased [Not Recovered/Not Resolved]
  - Discomfort [Unknown]
  - Back pain [Not Recovered/Not Resolved]
  - Ear infection [Unknown]
  - Cyst [Unknown]
  - Blood urine present [Not Recovered/Not Resolved]
  - Gastric disorder [Not Recovered/Not Resolved]
